FAERS Safety Report 5816271-0 (Version None)
Quarter: 2008Q3

REPORT INFORMATION
  Report Type: 
  Country: None (occurrence: None)
  Receive Date: 20080721
  Receipt Date: 20080717
  Transmission Date: 20090109
  Serious: Yes (Death)
  Sender: FDA-Public Use
  Company Number: JP-ABBOTT-08P-087-0445270-00

PATIENT
  Age: 80 Year
  Sex: Male
  Weight: 50 kg

DRUGS (10)
  1. LEUPROLIDE ACETATE [Suspect]
     Indication: PROSTATE CANCER STAGE IV
     Route: 058
     Dates: start: 20060823, end: 20070423
  2. LEUPROLIDE ACETATE [Suspect]
     Route: 058
     Dates: start: 20060627, end: 20060726
  3. VOGLIBOSE [Concomitant]
     Indication: DIABETES MELLITUS
     Route: 048
  4. FLUTAMIDE [Concomitant]
     Indication: PROSTATE CANCER STAGE IV
     Route: 048
     Dates: start: 20070129, end: 20070220
  5. FOSFESTROL TETRASODIUM [Concomitant]
     Indication: PROSTATE CANCER STAGE IV
     Route: 042
     Dates: start: 20070222, end: 20070228
  6. BICALUTAMIDE [Concomitant]
     Indication: PROSTATE CANCER STAGE IV
     Route: 048
     Dates: end: 20071109
  7. MITIGLINIDE CALCIUM HYDRATE [Concomitant]
     Indication: DIABETES MELLITUS
     Route: 048
  8. SENNA ALEXANDRINA LEAF [Concomitant]
     Indication: CONSTIPATION
     Route: 048
  9. TAMSULOSIN HCL [Concomitant]
     Indication: BENIGN PROSTATIC HYPERPLASIA
     Route: 048
  10. DEXAMETHASONE [Concomitant]
     Indication: PROSTATE CANCER STAGE IV
     Route: 048
     Dates: start: 20070308, end: 20070521

REACTIONS (1)
  - PNEUMONIA [None]
